FAERS Safety Report 8402085-4 (Version None)
Quarter: 2012Q2

REPORT INFORMATION
  Report Type: 
  Country: None (occurrence: None)
  Receive Date: 20120601
  Receipt Date: 20120529
  Transmission Date: 20120825
  Serious: Yes (Life-Threatening, Hospitalization)
  Sender: FDA-Public Use
  Company Number: PHFR2012GB002914

PATIENT
  Sex: Male

DRUGS (6)
  1. CLOZARIL [Suspect]
     Indication: SCHIZOPHRENIA
     Dosage: UNK UKN, UNK
     Route: 048
     Dates: start: 20120501
  2. OLANZAPINE [Concomitant]
     Dosage: 10 MG, DAILY
     Route: 048
     Dates: start: 20120511
  3. ZOPICLONE [Suspect]
     Indication: INSOMNIA
     Dosage: 7.5 MG, DAILY
     Route: 048
     Dates: start: 20120430
  4. NITRAZEPAM [Suspect]
     Route: 048
  5. LORAZEPAM [Suspect]
     Dosage: 1 MG, PRN
     Route: 048
     Dates: start: 20120430
  6. BENZODIAZEPINES [Concomitant]
     Dosage: UNK UKN, UNK

REACTIONS (4)
  - PNEUMONIA ASPIRATION [None]
  - OVERDOSE [None]
  - RESPIRATORY ARREST [None]
  - MULTIPLE DRUG OVERDOSE [None]
